FAERS Safety Report 6230147-9 (Version None)
Quarter: 2009Q2

REPORT INFORMATION
  Report Type: 
  Country: None (occurrence: None)
  Receive Date: 20090615
  Receipt Date: 20090604
  Transmission Date: 20091009
  Serious: Yes (Other)
  Sender: FDA-Public Use
  Company Number: PHHY2009FR22081

PATIENT
  Age: 15 Year
  Sex: Female

DRUGS (3)
  1. RITALIN [Suspect]
     Indication: ATTENTION DEFICIT/HYPERACTIVITY DISORDER
     Dosage: 30 MG, IN MORNING
     Route: 048
     Dates: end: 20090407
  2. RITALIN [Suspect]
     Dosage: 10 MG, IN THE EVENING
     Route: 048
  3. YAZ [Concomitant]
     Indication: DYSMENORRHOEA

REACTIONS (4)
  - CONVERSION DISORDER [None]
  - HEMIPLEGIA [None]
  - TETANY [None]
  - TOOTH EXTRACTION [None]
